FAERS Safety Report 16661844 (Version 2)
Quarter: 2019Q3

REPORT INFORMATION
  Report Type: Report from Study
  Country: BR (occurrence: BR)
  Receive Date: 20190802
  Receipt Date: 20190812
  Transmission Date: 20191004
  Serious: Yes (Death, Hospitalization)
  Sender: FDA-Public Use
  Company Number: PHHY2019BR176770

PATIENT
  Age: 75 Year
  Sex: Male

DRUGS (2)
  1. MEKINIST [Suspect]
     Active Substance: TRAMETINIB DIMETHYL SULFOXIDE
     Indication: PRODUCT USED FOR UNKNOWN INDICATION
     Dosage: UNK
     Route: 065
     Dates: start: 20190712
  2. TAFINLAR [Suspect]
     Active Substance: DABRAFENIB MESYLATE
     Indication: PRODUCT USED FOR UNKNOWN INDICATION
     Dosage: UNK
     Route: 065
     Dates: start: 20190712

REACTIONS (7)
  - Infection [Not Recovered/Not Resolved]
  - Vomiting [Unknown]
  - Death [Fatal]
  - Malaise [Unknown]
  - Lung neoplasm malignant [Unknown]
  - General physical health deterioration [Not Recovered/Not Resolved]
  - Malignant neoplasm of pleura [Unknown]

NARRATIVE: CASE EVENT DATE: 20190807
